FAERS Safety Report 8847971 (Version 2)
Quarter: 2012Q4

REPORT INFORMATION
  Report Type: 
  Country: JP (occurrence: JP)
  Receive Date: 20121018
  Receipt Date: 20121105
  Transmission Date: 20130627
  Serious: Yes (Other)
  Sender: FDA-Public Use
  Company Number: JP-JNJFOC-20121007780

PATIENT
  Age: 72 Year
  Sex: Female

DRUGS (12)
  1. REMINYL [Suspect]
     Indication: DEMENTIA
     Route: 048
  2. REMINYL [Suspect]
     Indication: DEMENTIA
     Route: 048
  3. UNKNOWN MEDICATION [Interacting]
     Indication: DEMENTIA
     Route: 065
  4. SODIUM CHLORIDE [Concomitant]
     Route: 065
  5. KOBALNON [Concomitant]
     Route: 065
  6. MICOMBI [Concomitant]
     Route: 048
  7. CALBLOCK [Concomitant]
     Route: 048
  8. VILDAGLIPTIN [Concomitant]
     Route: 048
  9. PRAVASTAN [Concomitant]
     Route: 048
  10. NORVASC [Concomitant]
     Route: 048
  11. GLIMEPIRIDE [Concomitant]
     Route: 048
  12. GAMOFA [Concomitant]
     Route: 048

REACTIONS (2)
  - Dementia [Unknown]
  - Drug interaction [Unknown]
